FAERS Safety Report 9212781 (Version 1)
Quarter: 2013Q1

REPORT INFORMATION
  Report Type: Spontaneous
  Country: US (occurrence: None)
  Receive Date: 20120824
  Receipt Date: 20120824
  Transmission Date: 20140127
  Serious: Yes (Hospitalization)
  Sender: FDA-Public Use
  Company Number: A-US2011-55435

PATIENT
  Age: 54 Year
  Sex: Female

DRUGS (4)
  1. VELETRI [Suspect]
     Indication: PULMONARY ARTERIAL HYPERTENSION
     Dosage: 26 NG/KG, PER MIN, INTRAVENOUS
     Route: 042
     Dates: start: 20100917
  2. LETAIRIS (AMBRISENTAN) (TABLET) (AMBRISENTAN) [Concomitant]
  3. SILDENAFIL (SILDENAFIL CITRATE) [Concomitant]
  4. LASIX (FUROSEMIDE SODIUM) [Concomitant]

REACTIONS (4)
  - Pulmonary arterial hypertension [None]
  - Disease progression [None]
  - Dyspnoea [None]
  - Fluid retention [None]
